FAERS Safety Report 5103096-7 (Version None)
Quarter: 2006Q3

REPORT INFORMATION
  Report Type: 
  Country: None (occurrence: None)
  Receive Date: 20060905
  Receipt Date: 20060831
  Transmission Date: 20061208
  Serious: Yes (Other)
  Sender: FDA-Public Use
  Company Number: HQWYE714818AUG06

PATIENT
  Age: 78 Year
  Sex: Male

DRUGS (13)
  1. CORDARONE [Suspect]
     Dosage: SEE IMAGE
     Dates: end: 20050501
  2. CORDARONE [Suspect]
     Dosage: SEE IMAGE
     Dates: start: 20060617, end: 20060809
  3. CORDARONE [Suspect]
     Dosage: SEE IMAGE
     Dates: start: 20060810
  4. ATORVASTATIN CALCIUM [Concomitant]
  5. BISOPROLOL FUMARATE [Concomitant]
  6. PREDNISOLONE [Concomitant]
  7. CLOPIDOGREL BISULFATE [Concomitant]
  8. PERINDOPRIL ERBUMINE [Concomitant]
  9. SPIRONOLACTONE [Concomitant]
  10. DIGOXIN [Concomitant]
  11. BUMETANIDE [Concomitant]
  12. WARFARIN SODIUM [Concomitant]
  13. ISOSORBIDE MONONITRATE [Concomitant]

REACTIONS (1)
  - BLOOD AMYLASE INCREASED [None]
